FAERS Safety Report 11439357 (Version 1)
Quarter: 2015Q3

REPORT INFORMATION
  Report Type: Spontaneous
  Country: US (occurrence: US)
  Receive Date: 20150901
  Receipt Date: 20150901
  Transmission Date: 20151125
  Serious: No
  Sender: FDA-Public Use
  Company Number: US-ROCHE-1143025

PATIENT
  Sex: Male

DRUGS (3)
  1. RIBASPHERE [Suspect]
     Active Substance: RIBAVIRIN
     Indication: CHRONIC HEPATITIS C
     Dosage: IN DIVIDED DOSES 600/600
     Route: 065
     Dates: start: 20120817
  2. BOCEPREVIR [Concomitant]
     Active Substance: BOCEPREVIR
     Route: 065
  3. PEGASYS [Suspect]
     Active Substance: PEGINTERFERON ALFA-2A
     Indication: CHRONIC HEPATITIS C
     Route: 058
     Dates: start: 20120817

REACTIONS (3)
  - Emotional distress [Unknown]
  - Insomnia [Unknown]
  - Feeling abnormal [Unknown]
